FAERS Safety Report 11009553 (Version 1)
Quarter: 2015Q2

REPORT INFORMATION
  Report Type: Spontaneous
  Country: US (occurrence: None)
  Receive Date: 20150409
  Receipt Date: 20150409
  Transmission Date: 20150821
  Serious: Yes (Other)
  Sender: FDA-Public Use
  Company Number: None

PATIENT
  Age: 60 Year
  Sex: Female
  Weight: 113.4 kg

DRUGS (1)
  1. LYRICA [Suspect]
     Active Substance: PREGABALIN
     Indication: BACK PAIN
     Route: 048

REACTIONS (4)
  - Pruritus [None]
  - Mental disorder [None]
  - Joint swelling [None]
  - Peripheral swelling [None]

NARRATIVE: CASE EVENT DATE: 20150407
